FAERS Safety Report 12366654 (Version 1)
Quarter: 2016Q2

REPORT INFORMATION
  Report Type: Spontaneous
  Country: IT (occurrence: IT)
  Receive Date: 20160513
  Receipt Date: 20160513
  Transmission Date: 20160815
  Serious: Yes (Other)
  Sender: FDA-Public Use
  Company Number: IT-ACCORD-040463

PATIENT
  Age: 59 Year
  Sex: Male
  Weight: 70 kg

DRUGS (2)
  1. FLUOROURACIL ACCORD [Suspect]
     Active Substance: FLUOROURACIL
     Indication: HYPOPHARYNGEAL NEOPLASM
     Route: 042
     Dates: start: 20160315
  2. CARBOPLATIN PFIZER [Suspect]
     Active Substance: CARBOPLATIN
     Indication: HYPOPHARYNGEAL NEOPLASM
     Route: 042
     Dates: start: 20160315

REACTIONS (2)
  - Abdominal pain upper [Recovered/Resolved]
  - Flushing [Recovered/Resolved]

NARRATIVE: CASE EVENT DATE: 20160427
